FAERS Safety Report 10235658 (Version 1)
Quarter: 2014Q2

REPORT INFORMATION
  Report Type: Spontaneous
  Country: JP (occurrence: None)
  Receive Date: 20140611
  Receipt Date: 20140611
  Transmission Date: 20141212
  Serious: Yes (Hospitalization)
  Sender: FDA-Public Use
  Company Number: 2014COV00006

PATIENT
  Age: 82 Year
  Sex: Female

DRUGS (8)
  1. KAYEXALATE [Suspect]
     Indication: HYPERKALAEMIA
     Route: 048
     Dates: start: 20131225, end: 20140108
  2. ATELEC (CILNIDIPINE) [Concomitant]
  3. MICARDIS (TELMISARTAN) [Concomitant]
  4. KREMEZIN (CHARCOAL, ACTIVATED) [Concomitant]
  5. MYSLEE (ZOLPIDEM TARTRATE) [Concomitant]
  6. DOXAZOSIN (DOXAZOSIN MESILATE) [Concomitant]
  7. AM (ALUMINIUM HYDROXIDE GEL, DRIED/AMYLASE/CALCIUM CARBONATE/HERBAL EXTRACTE NOS/MAGNESIUM CARBONATE/SODIUM) [Concomitant]
  8. ALL OTHER THERAPEUTIC PRODUCTS (ALL OTHER THERAPEUTIC PRODUCTS) [Concomitant]

REACTIONS (14)
  - Inflammatory marker increased [None]
  - Inflammation [None]
  - Hypokalaemia [None]
  - Pyrexia [None]
  - Feeling abnormal [None]
  - Faeces hard [None]
  - Back pain [None]
  - Body temperature decreased [None]
  - Blood pressure systolic increased [None]
  - White blood cell count increased [None]
  - C-reactive protein increased [None]
  - Blood creatinine increased [None]
  - Haemoglobin decreased [None]
  - Blood urea increased [None]
